FAERS Safety Report 16852314 (Version 1)
Quarter: 2019Q3

REPORT INFORMATION
  Report Type: Report from Study
  Country: CA (occurrence: CA)
  Receive Date: 20190925
  Receipt Date: 20190925
  Transmission Date: 20191005
  Serious: Yes (Hospitalization, Other)
  Sender: FDA-Public Use
  Company Number: CA-PFIZER INC-2019410330

PATIENT
  Age: 45 Year
  Sex: Female
  Weight: 74 kg

DRUGS (3)
  1. METRONIDAZOLE. [Suspect]
     Active Substance: METRONIDAZOLE
     Indication: ABSCESS INTESTINAL
     Dosage: 250 MG, UNK [EVERY 2 DAY(S)]
     Route: 065
  2. STELARA [Suspect]
     Active Substance: USTEKINUMAB
     Indication: CROHN^S DISEASE
     Dosage: 90 MG, UNK [1 EVERY 8 WEEK(S)]
     Route: 058
  3. CIPROFLOXACIN. [Suspect]
     Active Substance: CIPROFLOXACIN
     Indication: ABSCESS INTESTINAL
     Dosage: 50 MG, UNK [1 EVERY 2 DAY(S)]
     Route: 048

REACTIONS (5)
  - Haemorrhoids [Not Recovered/Not Resolved]
  - Postoperative ileus [Not Recovered/Not Resolved]
  - Vertigo [Not Recovered/Not Resolved]
  - Irritable bowel syndrome [Not Recovered/Not Resolved]
  - Abscess intestinal [Not Recovered/Not Resolved]
